FAERS Safety Report 9385684 (Version 1)
Quarter: 2013Q3

REPORT INFORMATION
  Report Type: Spontaneous
  Country: US (occurrence: US)
  Receive Date: 20130705
  Receipt Date: 20130705
  Transmission Date: 20140515
  Serious: No
  Sender: FDA-Public Use
  Company Number: US-009507513-1306USA010188

PATIENT
  Age: 76 Year
  Sex: Male

DRUGS (6)
  1. PROVENTIL [Suspect]
     Indication: DYSPNOEA
     Dosage: STANDARD DOSE OF 6.7
     Route: 055
     Dates: start: 1998
  2. PROVENTIL [Suspect]
     Indication: WHEEZING
  3. PROVENTIL [Suspect]
     Indication: ASTHMA
  4. PROVENTIL [Suspect]
     Indication: MULTIPLE ALLERGIES
  5. QVAR [Concomitant]
  6. ZYRTEC [Concomitant]

REACTIONS (3)
  - Wheezing [Recovering/Resolving]
  - Drug dose omission [Unknown]
  - Product quality issue [Unknown]
